FAERS Safety Report 10156386 (Version 2)
Quarter: 2014Q2

REPORT INFORMATION
  Report Type: Spontaneous
  Country: US (occurrence: US)
  Receive Date: 20140507
  Receipt Date: 20140515
  Transmission Date: 20141212
  Serious: Yes (Other)
  Sender: FDA-Public Use
  Company Number: US-MERCK-1405USA002976

PATIENT
  Sex: Female

DRUGS (3)
  1. PEGINTERFERON ALFA-2B [Suspect]
     Indication: HEPATITIS C
     Dosage: UNK
  2. REBETOL [Suspect]
     Indication: HEPATITIS C
  3. SOFOSBUVIR [Concomitant]

REACTIONS (3)
  - Gallbladder operation [Unknown]
  - Viral load increased [Unknown]
  - Malaise [Unknown]
